FAERS Safety Report 7620085-9 (Version None)
Quarter: 2011Q3

REPORT INFORMATION
  Report Type: 
  Country: None (occurrence: None)
  Receive Date: 20110719
  Receipt Date: 20110708
  Transmission Date: 20111222
  Serious: Yes (Death)
  Sender: FDA-Public Use
  Company Number: GB-JNJFOC-20110704223

PATIENT
  Age: 72 Year
  Sex: Female

DRUGS (1)
  1. REMICADE [Suspect]
     Indication: VASCULITIS
     Route: 042
     Dates: start: 20020709

REACTIONS (5)
  - TEMPORAL ARTERITIS [None]
  - ABSCESS INTESTINAL [None]
  - DIVERTICULITIS [None]
  - INFECTIOUS PERITONITIS [None]
  - DIVERTICULAR PERFORATION [None]
